FAERS Safety Report 7220605-2 (Version None)
Quarter: 2011Q1

REPORT INFORMATION
  Report Type: 
  Country: None (occurrence: None)
  Receive Date: 20110111
  Receipt Date: 20110104
  Transmission Date: 20110831
  Serious: Yes (Other)
  Sender: FDA-Public Use
  Company Number: FI-PFIZER INC-2011001219

PATIENT
  Sex: Female

DRUGS (2)
  1. LYRICA [Suspect]
     Dosage: 75 MG, 2X/DAY
     Dates: start: 20101209, end: 20101222
  2. LYRICA [Suspect]
     Indication: NEURALGIA
     Dosage: 75 MG, 1X/DAY
     Dates: start: 20101202, end: 20101208

REACTIONS (7)
  - BACTERIAL INFECTION [None]
  - PARAESTHESIA [None]
  - ANAPHYLACTIC REACTION [None]
  - FALL [None]
  - URTICARIA [None]
  - DIZZINESS [None]
  - PRURITUS [None]
